FAERS Safety Report 21735686 (Version 1)
Quarter: 2022Q4

REPORT INFORMATION
  Report Type: Report from Study
  Country: US (occurrence: US)
  Receive Date: 20221215
  Receipt Date: 20221215
  Transmission Date: 20230113
  Serious: No
  Sender: FDA-Public Use
  Company Number: US-002147023-NVSC2022US288600

PATIENT
  Sex: Female

DRUGS (1)
  1. ENTRESTO [Suspect]
     Active Substance: SACUBITRIL\VALSARTAN
     Indication: Product used for unknown indication
     Dosage: UNK
     Route: 065

REACTIONS (9)
  - Hypoaesthesia [Unknown]
  - Muscular weakness [Unknown]
  - Back pain [Unknown]
  - Abdominal distension [Unknown]
  - Feeling of body temperature change [Unknown]
  - Chills [Unknown]
  - Peripheral swelling [Unknown]
  - Fatigue [Unknown]
  - Cough [Unknown]
